FAERS Safety Report 8297888-3 (Version None)
Quarter: 2012Q2

REPORT INFORMATION
  Report Type: 
  Country: None (occurrence: None)
  Receive Date: 20120419
  Receipt Date: 20120412
  Transmission Date: 20120825
  Serious: Yes (Other)
  Sender: FDA-Public Use
  Company Number: PHFR2012GB002244

PATIENT
  Age: 52 Year
  Sex: Male
  Weight: 80 kg

DRUGS (3)
  1. TASIGNA [Suspect]
     Indication: CHRONIC MYELOID LEUKAEMIA
     Dosage: 400 MG, BID
     Route: 048
     Dates: start: 20111121, end: 20111229
  2. LANSOPRAZOLE [Concomitant]
     Route: 048
     Dates: end: 20120101
  3. RANITIDINE [Concomitant]
     Dosage: 300 MG, UNK
     Route: 048
     Dates: start: 20120201

REACTIONS (3)
  - TRANSFER FACTOR REDUCED [None]
  - DYSPNOEA EXERTIONAL [None]
  - TOTAL LUNG CAPACITY DECREASED [None]
